FAERS Safety Report 7728154-X (Version None)
Quarter: 2011Q3

REPORT INFORMATION
  Report Type: 
  Country: None (occurrence: None)
  Receive Date: 20110905
  Receipt Date: 20110830
  Transmission Date: 20111222
  Serious: Yes (Other)
  Sender: FDA-Public Use
  Company Number: DE-BRISTOL-MYERS SQUIBB COMPANY-16018525

PATIENT

DRUGS (1)
  1. ORENCIA [Suspect]

REACTIONS (2)
  - ARRHYTHMIA [None]
  - CONDITION AGGRAVATED [None]
